FAERS Safety Report 8298806-4 (Version None)
Quarter: 2012Q1

REPORT INFORMATION
  Report Type: 
  Country: None (occurrence: None)
  Receive Date: 20120323
  Receipt Date: 20090629
  Transmission Date: 20120608
  Serious: Yes (Other)
  Sender: FDA-Public Use
  Company Number: PHEH2009US06579

PATIENT
  Age: 16 Year
  Sex: Male

DRUGS (1)
  1. TOBI [Suspect]
     Dosage: 300 MG BID 28 DAYS ON, 28 DAYS OFF, INHALATION
     Route: 055

REACTIONS (1)
  - HAEMOPTYSIS [None]
